FAERS Safety Report 4535893-0 (Version None)
Quarter: 2004Q4

REPORT INFORMATION
  Report Type: 
  Country: None (occurrence: None)
  Receive Date: 20041223
  Receipt Date: 20040923
  Transmission Date: 20050328
  Serious: Yes (Hospitalization, Other)
  Sender: FDA-Public Use
  Company Number: PHEH2004US10246

PATIENT
  Age: 88 Year
  Sex: Male

DRUGS (3)
  1. AREDIA [Suspect]
     Indication: MULTIPLE MYELOMA
     Dosage: 90 MG, QMO
     Dates: start: 20010212, end: 20040826
  2. PREDNISONE [Concomitant]
     Indication: MULTIPLE MYELOMA
     Dosage: 60 MG, QOD
     Dates: start: 20040129
  3. INDOCIN [Concomitant]
     Dates: end: 20040301

REACTIONS (11)
  - ASTHENIA [None]
  - BLOOD CREATININE INCREASED [None]
  - BLOOD PRESSURE INCREASED [None]
  - BLOOD UREA INCREASED [None]
  - CARDIAC FAILURE CONGESTIVE [None]
  - DEHYDRATION [None]
  - DIABETES MELLITUS [None]
  - HAEMOGLOBIN DECREASED [None]
  - HYPERKALAEMIA [None]
  - RENAL CYST [None]
  - RENAL FAILURE CHRONIC [None]
